FAERS Safety Report 6577517-7 (Version None)
Quarter: 2010Q1

REPORT INFORMATION
  Report Type: 
  Country: None (occurrence: None)
  Receive Date: 20100211
  Receipt Date: 20100202
  Transmission Date: 20100710
  Serious: Yes (Other)
  Sender: FDA-Public Use
  Company Number: US-ASTRAZENECA-2010SE04698

PATIENT
  Age: 76 Year
  Sex: Female
  Weight: 47.6 kg

DRUGS (2)
  1. FASLODEX [Suspect]
     Indication: BREAST CANCER
     Dosage: ONE INJECTION
     Route: 030
     Dates: start: 20091223
  2. FASLODEX [Suspect]
     Dosage: ONE INJECTION
     Route: 030
     Dates: start: 20100122

REACTIONS (5)
  - ABDOMINAL DISCOMFORT [None]
  - ASCITES [None]
  - OEDEMA PERIPHERAL [None]
  - SURGERY [None]
  - WEIGHT DECREASED [None]
